FAERS Safety Report 23877983 (Version 2)
Quarter: 2024Q2

REPORT INFORMATION
  Report Type: Report from Study
  Country: IT (occurrence: IT)
  Receive Date: 20240521
  Receipt Date: 20240530
  Transmission Date: 20240715
  Serious: Yes (Hospitalization, Other)
  Sender: FDA-Public Use
  Company Number: IT-ROCHE-2967126

PATIENT

DRUGS (8)
  1. PRALSETINIB [Suspect]
     Active Substance: PRALSETINIB
     Indication: Product used for unknown indication
     Dosage: STOP DATE: 02/AUG/2021 (1 DF, BID)
     Route: 048
     Dates: start: 20210715, end: 20210802
  2. PRALSETINIB [Suspect]
     Active Substance: PRALSETINIB
     Dosage: STOP DATE: 13/AUG/2021 (1 DF, TID)
     Route: 065
     Dates: start: 20210802, end: 20210813
  3. PRALSETINIB [Suspect]
     Active Substance: PRALSETINIB
     Dosage: STOP DATE: 27/AUG/2021 (1 DF, QID)
     Route: 065
     Dates: start: 20210813, end: 20210827
  4. PRALSETINIB [Suspect]
     Active Substance: PRALSETINIB
     Dosage: STOP DATE: 03/SEP/2021 (1 DF, TID)
     Route: 065
     Dates: start: 20210827, end: 20210903
  5. PRALSETINIB [Suspect]
     Active Substance: PRALSETINIB
     Dosage: STOP DATE: 12/NOV/2021 (1 DF, BID)
     Route: 065
     Dates: start: 20211013, end: 20211112
  6. PRALSETINIB [Suspect]
     Active Substance: PRALSETINIB
     Dosage: STOP DATE: 24/NOV/2021 (1 DF, TID)
     Route: 065
     Dates: start: 20211112, end: 20211124
  7. PRALSETINIB [Suspect]
     Active Substance: PRALSETINIB
     Dosage: 1 DOSAGE FORM, BID
     Route: 065
     Dates: start: 20211128
  8. PRALSETINIB [Suspect]
     Active Substance: PRALSETINIB
     Dosage: 1 DOSAGE FORM, TID
     Route: 065
     Dates: start: 20211224

REACTIONS (13)
  - Mucosal toxicity [Unknown]
  - Toxicity to various agents [Unknown]
  - Bronchiolitis [Unknown]
  - Leukopenia [Unknown]
  - Neutropenia [Unknown]
  - Fall [Unknown]
  - Anaemia [Recovering/Resolving]
  - Asthenia [Unknown]
  - Skin fissures [Unknown]
  - Herpes zoster [Unknown]
  - Diarrhoea [Unknown]
  - Chest X-ray abnormal [Unknown]
  - Off label use [Unknown]

NARRATIVE: CASE EVENT DATE: 20210726
